FAERS Safety Report 4647799-7 (Version None)
Quarter: 2005Q2

REPORT INFORMATION
  Report Type: 
  Country: None (occurrence: None)
  Receive Date: 20050426
  Receipt Date: 20050412
  Transmission Date: 20051028
  Serious: Yes (Hospitalization)
  Sender: FDA-Public Use
  Company Number: 05P-056-0297188-00

PATIENT
  Age: 73 Year
  Sex: Male
  Weight: 84 kg

DRUGS (5)
  1. TRICOR [Suspect]
     Indication: DYSLIPIDAEMIA
     Dosage: 200 MG, 1 IN 1 D ORAL
     Route: 048
     Dates: start: 20040101, end: 20041220
  2. ALLOPURINOL [Concomitant]
  3. ACETAMINOPHEN W/ PROPOXYPHENE HCL [Concomitant]
  4. SECTRAL [Concomitant]
  5. KETOPROFEN [Concomitant]

REACTIONS (9)
  - ARTHROPOD STING [None]
  - DIARRHOEA [None]
  - ECZEMA [None]
  - ERYTHEMA [None]
  - OEDEMA PERIPHERAL [None]
  - PRURITUS [None]
  - SKIN EXFOLIATION [None]
  - SWELLING FACE [None]
  - TOXIC SKIN ERUPTION [None]
